FAERS Safety Report 20200699 (Version 4)
Quarter: 2022Q1

REPORT INFORMATION
  Report Type: Report from Study
  Country: CN (occurrence: None)
  Receive Date: 20211217
  Receipt Date: 20220201
  Transmission Date: 20220423
  Serious: Yes (Hospitalization)
  Sender: FDA-Public Use
  Company Number: CN-ROCHE-2977393

PATIENT
  Age: 58 Year
  Sex: Male
  Weight: 86 kg

DRUGS (6)
  1. TIRAGOLUMAB [Suspect]
     Active Substance: TIRAGOLUMAB
     Indication: Non-small cell lung cancer stage III
     Dosage: ON 09/NOV/2021,MOST RECENT DOSE (1680 MG) OF TIRAGOLUMAB PRIOR TO SAE.
     Route: 042
     Dates: start: 20211013
  2. ATEZOLIZUMAB [Suspect]
     Active Substance: ATEZOLIZUMAB
     Indication: Non-small cell lung cancer stage III
     Dosage: ON 09/NOV/2021,MOST RECENT DOSE (840 MG) OF ATEZOLIZUMAB PRIOR TO SAE.
     Route: 041
     Dates: start: 20211013
  3. AMLODIPINE BESYLATE [Concomitant]
     Active Substance: AMLODIPINE BESYLATE
     Indication: Hypertension
     Dates: start: 20211108
  4. LORATADINE [Concomitant]
     Active Substance: LORATADINE
     Indication: Pruritus
     Dates: start: 20211109, end: 20211128
  5. OMEPRAZOLE SODIUM [Concomitant]
     Active Substance: OMEPRAZOLE SODIUM
     Route: 042
     Dates: start: 20211208, end: 20211213
  6. MEGESTROL ACETATE [Concomitant]
     Active Substance: MEGESTROL ACETATE
     Dates: start: 20211207, end: 20211226

REACTIONS (1)
  - Radiation pneumonitis [Recovering/Resolving]

NARRATIVE: CASE EVENT DATE: 20211208
